FAERS Safety Report 17790814 (Version 1)
Quarter: 2020Q2

REPORT INFORMATION
  Report Type: Spontaneous
  Country: US (occurrence: US)
  Receive Date: 20200514
  Receipt Date: 20200514
  Transmission Date: 20200714
  Serious: Yes (Other)
  Sender: FDA-Public Use
  Company Number: None

PATIENT
  Age: 31 Year
  Sex: Female

DRUGS (18)
  1. ADVAIR HFA 115/21 MCG [Concomitant]
  2. CULTURELLE [Concomitant]
     Active Substance: LACTOBACILLUS RHAMNOSUS
  3. TRI-SPRINTEC [Concomitant]
     Active Substance: ETHINYL ESTRADIOL\NORGESTIMATE
  4. AZITHROMYCIN 250 MG [Concomitant]
     Active Substance: AZITHROMYCIN ANHYDROUS
  5. SERTRALINE 50 MG [Concomitant]
     Active Substance: SERTRALINE HYDROCHLORIDE
  6. IBUPROFEN 800 MG [Concomitant]
     Active Substance: IBUPROFEN
  7. PULMOZYME [Concomitant]
     Active Substance: DORNASE ALFA
  8. FISH OIL 1000 MG [Concomitant]
  9. VITAMIN D3 50,000U [Concomitant]
  10. OMEPRAZOLE 40 MG [Concomitant]
     Active Substance: OMEPRAZOLE
  11. TRIKAFTA [Suspect]
     Active Substance: ELEXACAFTOR\IVACAFTOR\TEZACAFTOR
     Indication: CYSTIC FIBROSIS
     Route: 048
     Dates: start: 20191105
  12. SYMDEKO [Suspect]
     Active Substance: IVACAFTOR\TEZACAFTOR
  13. DOCQLACE [Concomitant]
     Active Substance: DOCUSATE SODIUM
  14. VALACYCLOVIR 500 MG [Concomitant]
     Active Substance: VALACYCLOVIR HYDROCHLORIDE
  15. CREON 24,000 U [Concomitant]
  16. ALBUTEROL HFA [Concomitant]
     Active Substance: ALBUTEROL SULFATE
  17. SUPRAX [Concomitant]
     Active Substance: CEFIXIME
  18. NOVOLOG U-100 [Concomitant]

REACTIONS (1)
  - Abdominal distension [None]

NARRATIVE: CASE EVENT DATE: 20200514
